FAERS Safety Report 22063529 (Version 1)
Quarter: 2023Q1

REPORT INFORMATION
  Report Type: Spontaneous
  Country: US (occurrence: US)
  Receive Date: 20230306
  Receipt Date: 20230306
  Transmission Date: 20230417
  Serious: No
  Sender: FDA-Public Use
  Company Number: US-PADAGIS-2023PAD00171

PATIENT

DRUGS (1)
  1. DICLOFENAC SODIUM [Suspect]
     Active Substance: DICLOFENAC SODIUM
     Indication: Product used for unknown indication
     Dosage: 4 G FOR EACH KNEE (IN MORNING)
     Route: 065
     Dates: start: 20230209

REACTIONS (2)
  - Blood glucose increased [None]
  - Incorrect dose administered [Unknown]

NARRATIVE: CASE EVENT DATE: 20230209
